FAERS Safety Report 16018514 (Version 2)
Quarter: 2019Q1

REPORT INFORMATION
  Report Type: Spontaneous
  Country: DE (occurrence: DE)
  Receive Date: 20190228
  Receipt Date: 20190228
  Transmission Date: 20190418
  Serious: Yes (Hospitalization)
  Sender: FDA-Public Use
  Company Number: PHHY2019DE042605

PATIENT
  Age: 67 Year
  Sex: Female
  Weight: 71 kg

DRUGS (47)
  1. LETROZOLE. [Suspect]
     Active Substance: LETROZOLE
     Indication: HER-2 POSITIVE BREAST CANCER
     Dosage: 2.5 MG, UNK
     Route: 065
  2. TRASTUZUMAB. [Suspect]
     Active Substance: TRASTUZUMAB
     Dosage: 132 MG, QW
     Route: 042
     Dates: start: 20140214
  3. PERTUZUMAB. [Suspect]
     Active Substance: PERTUZUMAB
     Dosage: 420 MG, Q3W
     Route: 042
     Dates: start: 20140224
  4. PERTUZUMAB. [Suspect]
     Active Substance: PERTUZUMAB
     Dosage: 420 MG, Q3W
     Route: 042
     Dates: start: 20141107
  5. DOCETAXEL. [Suspect]
     Active Substance: DOCETAXEL
     Dosage: 43 MG/M2, QW
     Route: 042
     Dates: start: 20140214
  6. DOCETAXEL. [Suspect]
     Active Substance: DOCETAXEL
     Dosage: 43 MG/M2, QW
     Route: 042
     Dates: start: 20140224
  7. DOCETAXEL. [Suspect]
     Active Substance: DOCETAXEL
     Dosage: 43 MG/M2, QW
     Route: 042
     Dates: start: 20140303, end: 20140303
  8. TRASTUZUMAB. [Suspect]
     Active Substance: TRASTUZUMAB
     Indication: HER-2 POSITIVE BREAST CANCER
     Dosage: 264 MG, QW
     Route: 042
     Dates: start: 20131227, end: 20131227
  9. TRASTUZUMAB. [Suspect]
     Active Substance: TRASTUZUMAB
     Dosage: 132 MG, QW
     Route: 042
     Dates: start: 20140117
  10. TRASTUZUMAB. [Suspect]
     Active Substance: TRASTUZUMAB
     Dosage: 132 MG, QW
     Route: 042
     Dates: start: 20140131
  11. TRASTUZUMAB. [Suspect]
     Active Substance: TRASTUZUMAB
     Dosage: 132 MG, QW
     Route: 042
     Dates: end: 20140404
  12. PERTUZUMAB. [Suspect]
     Active Substance: PERTUZUMAB
     Indication: HER-2 POSITIVE BREAST CANCER
     Dosage: 420 MG, QW
     Route: 042
     Dates: start: 20140110
  13. PERTUZUMAB. [Suspect]
     Active Substance: PERTUZUMAB
     Dosage: 420 MG, Q2W
     Route: 042
     Dates: start: 20140117
  14. TILIDIN [Concomitant]
     Active Substance: NALOXONE HYDROCHLORIDE\TILIDINE HYDROCHLORIDE
     Indication: CANCER PAIN
     Dosage: 1 OT, QD (50/4 MG)
     Route: 048
     Dates: start: 20131220
  15. TRASTUZUMAB. [Suspect]
     Active Substance: TRASTUZUMAB
     Dosage: 132 MG, QW
     Route: 042
     Dates: start: 20140102
  16. TRASTUZUMAB. [Suspect]
     Active Substance: TRASTUZUMAB
     Dosage: 132 MG, QW
     Route: 042
     Dates: start: 20140207
  17. TRASTUZUMAB. [Suspect]
     Active Substance: TRASTUZUMAB
     Dosage: 132 MG, QW
     Route: 042
     Dates: start: 20140303, end: 20140303
  18. TRASTUZUMAB. [Suspect]
     Active Substance: TRASTUZUMAB
     Dosage: 396 MG, Q3W
     Route: 042
     Dates: start: 20140613
  19. KEVATRIL [Concomitant]
     Active Substance: GRANISETRON HYDROCHLORIDE
     Indication: PROPHYLAXIS OF NAUSEA AND VOMITING
     Dosage: 1.5 MG, QW
     Route: 042
     Dates: start: 20131027
  20. FORTECORTIN [Concomitant]
     Active Substance: DEXAMETHASONE
     Indication: PROPHYLAXIS OF NAUSEA AND VOMITING
     Dosage: 8 MG, QW
     Route: 042
     Dates: start: 20131027
  21. DOCETAXEL. [Suspect]
     Active Substance: DOCETAXEL
     Dosage: 43 MG/M2, QW
     Route: 042
     Dates: start: 20140110
  22. DOCETAXEL. [Suspect]
     Active Substance: DOCETAXEL
     Dosage: 43 MG, QW
     Route: 042
     Dates: start: 20140117
  23. TRASTUZUMAB. [Suspect]
     Active Substance: TRASTUZUMAB
     Dosage: 132 MG, QW
     Route: 042
     Dates: start: 20140110
  24. TRASTUZUMAB. [Suspect]
     Active Substance: TRASTUZUMAB
     Dosage: 132 MG, QW
     Route: 042
     Dates: start: 20140310, end: 20140310
  25. TRASTUZUMAB. [Suspect]
     Active Substance: TRASTUZUMAB
     Dosage: 132 MG, QW
     Route: 042
     Dates: start: 20140331
  26. TRASTUZUMAB. [Suspect]
     Active Substance: TRASTUZUMAB
     Dosage: 396 MG, Q3W
     Route: 042
     Dates: start: 20141107
  27. IBUPROFEN. [Concomitant]
     Active Substance: IBUPROFEN
     Indication: CANCER PAIN
     Dosage: 600 MG, UNK
     Route: 048
  28. FENISTIL [Concomitant]
     Active Substance: DIMETHINDENE
     Indication: ANAPHYLAXIS PROPHYLAXIS
     Dosage: 1 DF, QW
     Route: 042
     Dates: start: 20131227
  29. KEVATRIL [Concomitant]
     Active Substance: GRANISETRON HYDROCHLORIDE
     Dosage: 1.5 MG, QW
     Route: 042
     Dates: start: 20140404
  30. DOCETAXEL. [Suspect]
     Active Substance: DOCETAXEL
     Indication: HER-2 POSITIVE BREAST CANCER
     Dosage: 43 MG, QW
     Route: 042
     Dates: start: 20131227, end: 20131227
  31. DOCETAXEL. [Suspect]
     Active Substance: DOCETAXEL
     Dosage: 43 MG/M2, QW
     Route: 042
     Dates: start: 20140207
  32. DOCETAXEL. [Suspect]
     Active Substance: DOCETAXEL
     Dosage: 43 MG, QW
     Route: 042
     Dates: start: 20141107
  33. PANTOPRAZOL [Concomitant]
     Active Substance: PANTOPRAZOLE SODIUM
     Indication: PROPHYLAXIS AGAINST GASTROINTESTINAL ULCER
     Dosage: 1 OT, QD
     Route: 048
     Dates: start: 20131220
  34. MONO-EMBOLEX [Concomitant]
     Active Substance: CERTOPARIN SODIUM
     Indication: PROPHYLAXIS
     Dosage: 1 OT, QD
     Route: 058
     Dates: start: 20131220, end: 20140417
  35. MONO-EMBOLEX [Concomitant]
     Active Substance: CERTOPARIN SODIUM
     Indication: FACTOR V LEIDEN MUTATION
     Dosage: UNK
     Route: 065
  36. RANITIC [Concomitant]
     Active Substance: RANITIDINE HYDROCHLORIDE
     Indication: ANAPHYLAXIS PROPHYLAXIS
     Dosage: 1 DF, QW
     Route: 042
     Dates: start: 20131227
  37. DOCETAXEL. [Suspect]
     Active Substance: DOCETAXEL
     Dosage: 43 MG/M2, QW
     Route: 042
     Dates: start: 20140131
  38. TRASTUZUMAB. [Suspect]
     Active Substance: TRASTUZUMAB
     Dosage: 396 MG, Q3W
     Route: 042
     Dates: start: 20140411
  39. BONDRONAT [Concomitant]
     Active Substance: IBANDRONATE SODIUM
     Indication: CANCER PAIN
     Dosage: 6 MG, EVERY 6 MINUTES
     Route: 042
     Dates: start: 20140303
  40. FORTECORTIN [Concomitant]
     Active Substance: DEXAMETHASONE
     Dosage: 8 MG, QW
     Route: 042
     Dates: start: 20140404
  41. RANITIC [Concomitant]
     Active Substance: RANITIDINE HYDROCHLORIDE
     Dosage: 1 DF, QW
     Route: 042
     Dates: start: 20140404
  42. DOCETAXEL. [Suspect]
     Active Substance: DOCETAXEL
     Dosage: 43 MG, QW
     Route: 042
     Dates: start: 20140124, end: 20140124
  43. DOCETAXEL. [Suspect]
     Active Substance: DOCETAXEL
     Dosage: 43 MG, QW
     Route: 042
     Dates: start: 20140310, end: 20140310
  44. TRASTUZUMAB. [Suspect]
     Active Substance: TRASTUZUMAB
     Dosage: 132 MG, QW
     Route: 042
     Dates: start: 20140124
  45. TRASTUZUMAB. [Suspect]
     Active Substance: TRASTUZUMAB
     Dosage: 132 MG, QW
     Route: 042
     Dates: start: 20140224
  46. PERTUZUMAB. [Suspect]
     Active Substance: PERTUZUMAB
     Dosage: 420 MG, Q3W
     Route: 042
     Dates: start: 20140613
  47. FENISTIL [Concomitant]
     Active Substance: DIMETHINDENE
     Dosage: 1 DF, QW
     Route: 042
     Dates: start: 20140404

REACTIONS (15)
  - Fatigue [Recovered/Resolved]
  - Macular hole [Unknown]
  - Abdominal pain upper [Recovered/Resolved]
  - Oral herpes [Recovered/Resolved]
  - Muscle spasms [Recovered/Resolved]
  - Macular scar [Recovered/Resolved]
  - Epistaxis [Recovered/Resolved]
  - Visual impairment [Recovered/Resolved]
  - Balance disorder [Recovered/Resolved]
  - Pruritus [Recovered/Resolved]
  - Lymphoedema [Recovered/Resolved]
  - Arthralgia [Recovered/Resolved]
  - Tachycardia [Recovered/Resolved]
  - Back pain [Recovered/Resolved]
  - Diarrhoea [Recovered/Resolved]

NARRATIVE: CASE EVENT DATE: 20140113
